FAERS Safety Report 13367766 (Version 1)
Quarter: 2017Q1

REPORT INFORMATION
  Report Type: Spontaneous
  Country: RO (occurrence: RO)
  Receive Date: 20170324
  Receipt Date: 20170324
  Transmission Date: 20170429
  Serious: Yes (Other)
  Sender: FDA-Public Use
  Company Number: RO-ACCORD-049293

PATIENT
  Age: 62 Year
  Sex: Female

DRUGS (6)
  1. IRINOTECAN [Suspect]
     Active Substance: IRINOTECAN
     Indication: RECTAL ADENOCARCINOMA
     Dosage: EVERY 3 WEEKS
  2. CAPECITABINE. [Suspect]
     Active Substance: CAPECITABINE
     Indication: RECTAL ADENOCARCINOMA
     Dosage: 825 MG/ M2 TWICE A DAY, AT 30 MIN AFTER MAIN MEALS, FOR 5 DAYS PER WEEK
  3. BEVACIZUMAB [Concomitant]
     Active Substance: BEVACIZUMAB
     Indication: RECTAL ADENOCARCINOMA
     Dosage: DAY 1, AT EVERY 2 WEEKS FOR 6 MONTHS
     Route: 042
  4. OXALIPLATIN. [Suspect]
     Active Substance: OXALIPLATIN
     Indication: RECTAL ADENOCARCINOMA
     Dosage: EVERY 3 WEEKS
     Route: 042
  5. FOLINIC ACID [Concomitant]
     Active Substance: LEUCOVORIN
     Indication: RECTAL ADENOCARCINOMA
     Dosage: DAY 1, FOLFIRI
     Route: 042
  6. FLUOROURACIL. [Concomitant]
     Active Substance: FLUOROURACIL
     Indication: RECTAL ADENOCARCINOMA
     Dosage: ON DAY 1 AND 5-FU 2400MG/ M2 OVER 46 HOURS IV CONTINUOUS INFUSION, AT EVERY 2 WEEKS,??FOLFIRI
     Route: 040

REACTIONS (4)
  - Neutropenia [Unknown]
  - Peripheral sensory neuropathy [Unknown]
  - Leukopenia [Unknown]
  - Diarrhoea [Unknown]
